FAERS Safety Report 5838902-1 (Version None)
Quarter: 2008Q3

REPORT INFORMATION
  Report Type: 
  Country: None (occurrence: None)
  Receive Date: 20080808
  Receipt Date: 20080806
  Transmission Date: 20090109
  Serious: Yes (Death)
  Sender: FDA-Public Use
  Company Number: US-BOEHRINGER INGELHEIM GMBH, GERMANY-2008-BP-12201RO

PATIENT
  Sex: Male

DRUGS (1)
  1. SODIUM POLYSTYRENE SULFONATE [Suspect]
     Indication: BLOOD POTASSIUM INCREASED
     Route: 048
     Dates: start: 20080709, end: 20080709

REACTIONS (4)
  - CANDIDIASIS [None]
  - DEATH [None]
  - FUNGAL INFECTION [None]
  - GENERAL PHYSICAL HEALTH DETERIORATION [None]
